FAERS Safety Report 7562263-3 (Version None)
Quarter: 2011Q2

REPORT INFORMATION
  Report Type: 
  Country: None (occurrence: None)
  Receive Date: 20110620
  Receipt Date: 20110620
  Transmission Date: 20111010
  Serious: Yes (Life-Threatening, Hospitalization)
  Sender: FDA-Public Use
  Company Number: None

PATIENT
  Age: 16 Year
  Sex: Male
  Weight: 53.5244 kg

DRUGS (2)
  1. SAPHRIS [Suspect]
     Indication: SELF INJURIOUS BEHAVIOUR
     Dosage: ONE 5MG TABLET 1 X DAILY SL
     Route: 060
     Dates: start: 20110325, end: 20110525
  2. SAPHRIS [Suspect]
     Indication: AGGRESSION
     Dosage: ONE 5MG TABLET 1 X DAILY SL
     Route: 060
     Dates: start: 20110325, end: 20110525

REACTIONS (4)
  - DYSTONIA [None]
  - CONVULSION [None]
  - MUSCULOSKELETAL STIFFNESS [None]
  - RESPIRATORY DISORDER [None]
